FAERS Safety Report 5228909-X (Version None)
Quarter: 2007Q1

REPORT INFORMATION
  Report Type: 
  Country: None (occurrence: None)
  Receive Date: 20070205
  Receipt Date: 20070125
  Transmission Date: 20070707
  Serious: Yes (Death, Hospitalization)
  Sender: FDA-Public Use
  Company Number: FR-SANOFI-SYNTHELABO-A02200700297

PATIENT
  Age: 57 Year
  Sex: Male

DRUGS (4)
  1. LARGACTIL [Concomitant]
     Dosage: UNK
     Route: 048
     Dates: end: 20060901
  2. AMITRIPTYLINE HCL [Concomitant]
     Dosage: UNK
     Route: 048
     Dates: end: 20060901
  3. GEMZAR [Suspect]
     Indication: PANCREATIC CARCINOMA
     Route: 042
     Dates: start: 20060614, end: 20060811
  4. ELOXATIN [Suspect]
     Indication: PANCREATIC CARCINOMA
     Route: 042
     Dates: start: 20060614, end: 20060811

REACTIONS (5)
  - COMA HEPATIC [None]
  - HEPATIC ENZYME INCREASED [None]
  - HEPATITIS CHOLESTATIC [None]
  - JAUNDICE [None]
  - THROMBOCYTOPENIA [None]
